FAERS Safety Report 12157400 (Version 1)
Quarter: 2016Q1

REPORT INFORMATION
  Report Type: Spontaneous
  Country: US (occurrence: US)
  Receive Date: 20160308
  Receipt Date: 20160308
  Transmission Date: 20160526
  Serious: Yes (Other)
  Sender: FDA-Public Use
  Company Number: US-PFIZER INC-2015052423

PATIENT
  Age: 54 Year
  Sex: Male

DRUGS (4)
  1. SUTENT [Suspect]
     Active Substance: SUNITINIB MALATE
     Dosage: 50 MG, CYCLIC [DAILY FOR 28 DAYS; TAKE WITHOUT REGARD TO FOOD; 4 WEEKS ON 2 WEEKS OFF]
     Route: 048
     Dates: start: 20150204, end: 20150304
  2. SUTENT [Suspect]
     Active Substance: SUNITINIB MALATE
     Dosage: UNK
     Dates: start: 20160225
  3. SUTENT [Suspect]
     Active Substance: SUNITINIB MALATE
     Indication: METASTATIC RENAL CELL CARCINOMA
     Dosage: 50 MG, CYCLIC [DAILY FOR 28 DAYS; TAKE WITHOUT REGARD TO FOOD; 4 WEEKS ON 2 WEEKS OFF]
     Route: 048
     Dates: start: 20150213
  4. SUTENT [Suspect]
     Active Substance: SUNITINIB MALATE
     Dosage: UNK
     Dates: start: 20151111, end: 20151209

REACTIONS (2)
  - Pancreatic mass [Unknown]
  - Depression [Unknown]
